FAERS Safety Report 6525234-1 (Version None)
Quarter: 2009Q4

REPORT INFORMATION
  Report Type: 
  Country: None (occurrence: None)
  Receive Date: 20091222
  Receipt Date: 20091211
  Transmission Date: 20100525
  Serious: Yes (Hospitalization)
  Sender: FDA-Public Use
  Company Number: 002923

PATIENT
  Sex: Female

DRUGS (2)
  1. NEUPRO [Suspect]
     Dosage: (PATIENT SWITCHED TO SIFROL)
  2. SIFROL [Concomitant]

REACTIONS (1)
  - CARDIAC FAILURE [None]
